FAERS Safety Report 6018115-3 (Version None)
Quarter: 2008Q4

REPORT INFORMATION
  Report Type: 
  Country: None (occurrence: None)
  Receive Date: 20081223
  Receipt Date: 20081215
  Transmission Date: 20090506
  Serious: Yes (Hospitalization, Other)
  Sender: FDA-Public Use
  Company Number: US-ABBOTT-08P-163-0493023-00

PATIENT
  Sex: Female
  Weight: 45.4 kg

DRUGS (10)
  1. HUMIRA [Suspect]
     Indication: RHEUMATOID ARTHRITIS
     Dates: start: 20030801, end: 20081021
  2. NEURONTIN [Concomitant]
     Indication: NEUROPATHY PERIPHERAL
     Dates: start: 20040101
  3. CARAFATE [Concomitant]
     Indication: GASTRIC DISORDER
  4. NEXIUM [Concomitant]
     Indication: GASTRIC ULCER
  5. DARVON [Concomitant]
     Indication: PAIN
  6. DARVOCET [Concomitant]
     Indication: PAIN
  7. PREDNISONE TAB [Concomitant]
     Indication: RHEUMATOID ARTHRITIS
  8. UNKNOWN BP MEDICATION [Concomitant]
     Indication: BLOOD PRESSURE
  9. COUMADIN [Concomitant]
     Indication: ATRIAL FIBRILLATION
     Dates: start: 20040101
  10. ATENOLOL [Concomitant]
     Indication: ATRIAL FIBRILLATION

REACTIONS (11)
  - ATRIAL FIBRILLATION [None]
  - BLOOD DISORDER [None]
  - FALL [None]
  - HEART RATE INCREASED [None]
  - HYPERTENSION [None]
  - MUSCULAR WEAKNESS [None]
  - MUSCULOSKELETAL PAIN [None]
  - OEDEMA PERIPHERAL [None]
  - SKIN BURNING SENSATION [None]
  - SKIN EXFOLIATION [None]
  - STAPHYLOCOCCAL SEPSIS [None]
